FAERS Safety Report 11289393 (Version 1)
Quarter: 2015Q3

REPORT INFORMATION
  Report Type: Spontaneous
  Country: GB (occurrence: GB)
  Receive Date: 20150721
  Receipt Date: 20150721
  Transmission Date: 20151125
  Serious: Yes (Disabling, Other)
  Sender: FDA-Public Use
  Company Number: GB-TEVA-578472ACC

PATIENT
  Age: 67 Year
  Sex: Male
  Weight: 87 kg

DRUGS (4)
  1. OMEGA-3 FISH OIL [Concomitant]
     Active Substance: FISH OIL\OMEGA-3 FATTY ACIDS
  2. PARACETAMOL [Concomitant]
     Active Substance: ACETAMINOPHEN
  3. SIMVASTATIN. [Suspect]
     Active Substance: SIMVASTATIN
     Indication: HYPERCHOLESTEROLAEMIA
     Route: 048
     Dates: start: 201411, end: 20150704
  4. OLMETEC [Concomitant]
     Active Substance: OLMESARTAN MEDOXOMIL

REACTIONS (8)
  - Fatigue [Unknown]
  - Memory impairment [Unknown]
  - Paraesthesia [Unknown]
  - Myalgia [Unknown]
  - Pruritus [Unknown]
  - Feeling abnormal [Unknown]
  - Poor quality sleep [Unknown]
  - Aggression [Unknown]

NARRATIVE: CASE EVENT DATE: 201411
